FAERS Safety Report 4294307-9 (Version None)
Quarter: 2004Q1

REPORT INFORMATION
  Report Type: 
  Country: None (occurrence: None)
  Receive Date: 20040212
  Receipt Date: 20040212
  Transmission Date: 20041129
  Serious: Yes (Hospitalization)
  Sender: FDA-Public Use
  Company Number: None

PATIENT
  Sex: Male
  Weight: 69.4003 kg

DRUGS (3)
  1. CISPLATIN [Suspect]
     Indication: LARYNGEAL CANCER
     Dosage: 100MG/M2 IV Q 21 DAYS X 3
     Route: 042
     Dates: start: 20031112
  2. CISPLATIN [Suspect]
     Indication: LARYNGEAL CANCER
     Dosage: 100MG/M2 IV Q 21 DAYS X 3
     Route: 042
     Dates: start: 20031203
  3. CISPLATIN [Suspect]
     Indication: LARYNGEAL CANCER
     Dosage: 100MG/M2 IV Q 21 DAYS X 3
     Route: 042
     Dates: start: 20031224

REACTIONS (3)
  - ANAEMIA [None]
  - ASTHENIA [None]
  - DEHYDRATION [None]
